FAERS Safety Report 4762918-X (Version None)
Quarter: 2005Q3

REPORT INFORMATION
  Report Type: 
  Country: None (occurrence: None)
  Receive Date: 20050907
  Receipt Date: 20050713
  Transmission Date: 20060218
  Serious: Yes (Other)
  Sender: FDA-Public Use
  Company Number: PHBS2005JP10041

PATIENT
  Age: 55 Year
  Sex: Male

DRUGS (1)
  1. AREDIA [Suspect]
     Indication: BONE PAIN
     Dosage: 45 MG/D
     Route: 042

REACTIONS (3)
  - DEPRESSED LEVEL OF CONSCIOUSNESS [None]
  - PYREXIA [None]
  - TETANY [None]
